FAERS Safety Report 15518890 (Version 1)
Quarter: 2018Q4

REPORT INFORMATION
  Report Type: Spontaneous
  Country: GR (occurrence: GR)
  Receive Date: 20181017
  Receipt Date: 20181017
  Transmission Date: 20190205
  Serious: Yes (Other)
  Sender: FDA-Public Use
  Company Number: GR-FRESENIUS KABI-FK201810753

PATIENT
  Age: 63 Year
  Sex: Female

DRUGS (1)
  1. DEFEROXAMINE MESYLATE (MANUFACTURER UNKNOWN) [Suspect]
     Active Substance: DEFEROXAMINE MESYLATE
     Indication: CHELATION THERAPY
     Dosage: 5 TIMES A WEEK BY AN 8 HOURLY SUBCUTANEOUS INFUSION.
     Route: 058

REACTIONS (1)
  - Maculopathy [Unknown]
